FAERS Safety Report 9661761 (Version 1)
Quarter: 2013Q4

REPORT INFORMATION
  Report Type: Spontaneous
  Country: US (occurrence: US)
  Receive Date: 20131031
  Receipt Date: 20131031
  Transmission Date: 20140711
  Serious: No
  Sender: FDA-Public Use
  Company Number: US-PURDUE-USA-2010-0067105

PATIENT
  Age: 59 Year
  Sex: Female
  Weight: 108.84 kg

DRUGS (3)
  1. OXYCONTIN (NDA 22-272) [Suspect]
     Indication: BACK PAIN
     Dosage: 480 MG, BID
     Route: 048
     Dates: start: 201008
  2. AMITREX [Concomitant]
     Indication: HEADACHE
  3. THYROID THERAPY [Concomitant]
     Indication: PRODUCT USED FOR UNKNOWN INDICATION

REACTIONS (2)
  - Breakthrough pain [Not Recovered/Not Resolved]
  - Headache [Not Recovered/Not Resolved]
